FAERS Safety Report 7135271-4 (Version None)
Quarter: 2010Q4

REPORT INFORMATION
  Report Type: 
  Country: None (occurrence: None)
  Receive Date: 20101203
  Receipt Date: 20101129
  Transmission Date: 20110411
  Serious: Yes (Death)
  Sender: FDA-Public Use
  Company Number: A0890412A

PATIENT
  Age: 64 Year
  Sex: Male
  Weight: 80.5 kg

DRUGS (1)
  1. ZOFRAN [Suspect]
     Dosage: 4MG UNKNOWN
     Route: 048
     Dates: start: 20100910, end: 20101030

REACTIONS (2)
  - ADVERSE EVENT [None]
  - COLON CANCER [None]
